FAERS Safety Report 17079723 (Version 1)
Quarter: 2019Q4

REPORT INFORMATION
  Report Type: Spontaneous
  Country: US (occurrence: US)
  Receive Date: 20191029
  Receipt Date: 20191029
  Transmission Date: 20200122
  Serious: Yes (Other)
  Sender: FDA-Public Use
  Company Number: None

PATIENT
  Age: 72 Year
  Sex: Female

DRUGS (6)
  1. AMLODIPINE BESYLATE. [Concomitant]
     Active Substance: AMLODIPINE BESYLATE
  2. IMIQUIMOD. [Suspect]
     Active Substance: IMIQUIMOD
     Indication: SKIN DISCOLOURATION
     Dosage: ?          QUANTITY:5 % PERCENT;?
     Dates: start: 20180509, end: 20181010
  3. CETEZINE [Concomitant]
  4. BABY ASPIRIN [Concomitant]
     Active Substance: ASPIRIN
  5. OMEPRAZOLE DR [Concomitant]
     Active Substance: OMEPRAZOLE
  6. ROSUVASTATIN CALCIUM. [Concomitant]
     Active Substance: ROSUVASTATIN CALCIUM

REACTIONS (4)
  - Anaemia [None]
  - Gastrooesophageal reflux disease [None]
  - Night sweats [None]
  - Weight decreased [None]

NARRATIVE: CASE EVENT DATE: 20181012
